FAERS Safety Report 4784552-8 (Version None)
Quarter: 2005Q3

REPORT INFORMATION
  Report Type: 
  Country: None (occurrence: None)
  Receive Date: 20050928
  Receipt Date: 20050913
  Transmission Date: 20060218
  Serious: Yes (Death)
  Sender: FDA-Public Use
  Company Number: 2005S1005652

PATIENT
  Age: 45 Year
  Sex: Male

DRUGS (6)
  1. CLOZAPINE [Suspect]
     Indication: SCHIZOPHRENIA, UNDIFFERENTIATED TYPE
     Dosage: 350 MG;HS;PO; SEE IMAGE
     Route: 048
     Dates: start: 20040525, end: 20050601
  2. CLOZAPINE [Suspect]
     Indication: SCHIZOPHRENIA, UNDIFFERENTIATED TYPE
     Dosage: 350 MG;HS;PO; SEE IMAGE
     Route: 048
     Dates: start: 20040525, end: 20050601
  3. TRIHEXPHENIDYL [Concomitant]
  4. HYDROCHLORIDE [Concomitant]
  5. IMIPRAMINE [Concomitant]
  6. OXYBUTYNIN [Concomitant]

REACTIONS (2)
  - ANTIPSYCHOTIC DRUG LEVEL INCREASED [None]
  - EXPOSURE TO EXTREME TEMPERATURE [None]
